FAERS Safety Report 4667380-3 (Version None)
Quarter: 2005Q2

REPORT INFORMATION
  Report Type: 
  Country: None (occurrence: None)
  Receive Date: 20050428
  Receipt Date: 20050223
  Transmission Date: 20051028
  Serious: Yes (Other)
  Sender: FDA-Public Use
  Company Number: 2005037415

PATIENT
  Sex: Female

DRUGS (1)
  1. ZITHROMAX [Suspect]
     Indication: ILL-DEFINED DISORDER
     Dosage: ORAL
     Route: 048
     Dates: start: 20040701, end: 20040701

REACTIONS (5)
  - ERYTHEMA MULTIFORME [None]
  - FEAR [None]
  - MYCOPLASMA INFECTION [None]
  - SKIN EXFOLIATION [None]
  - URTICARIA [None]
